FAERS Safety Report 11917260 (Version 1)
Quarter: 2016Q1

REPORT INFORMATION
  Report Type: Spontaneous
  Country: US (occurrence: US)
  Receive Date: 20160114
  Receipt Date: 20160114
  Transmission Date: 20160526
  Serious: Yes (Other)
  Sender: FDA-Public Use
  Company Number: US-AMGEN-USASP2016002893

PATIENT
  Sex: Male

DRUGS (14)
  1. CLOBETASOL [Concomitant]
     Active Substance: CLOBETASOL
     Dosage: UNK
  2. FOLIC ACID. [Concomitant]
     Active Substance: FOLIC ACID
  3. GLIPIZIDE. [Concomitant]
     Active Substance: GLIPIZIDE
  4. LEVOTHYROXINE. [Concomitant]
     Active Substance: LEVOTHYROXINE
  5. ZOLOFT [Concomitant]
     Active Substance: SERTRALINE HYDROCHLORIDE
  6. METHOTREXATE [Concomitant]
     Active Substance: METHOTREXATE
  7. LEXAPRO [Concomitant]
     Active Substance: ESCITALOPRAM OXALATE
  8. ENBREL [Suspect]
     Active Substance: ETANERCEPT
     Indication: PSORIASIS
     Dosage: 50 MG, 2 TIMES/WK
     Route: 058
  9. ENALAPRIL [Concomitant]
     Active Substance: ENALAPRIL
  10. VYTORIN [Concomitant]
     Active Substance: EZETIMIBE\SIMVASTATIN
  11. VICTOZA [Concomitant]
     Active Substance: LIRAGLUTIDE
  12. ASA [Concomitant]
     Active Substance: ASPIRIN
  13. ADVIL [Concomitant]
     Active Substance: IBUPROFEN
  14. PRILOSEC [Concomitant]
     Active Substance: OMEPRAZOLE MAGNESIUM

REACTIONS (2)
  - Bladder cancer [Unknown]
  - Treatment failure [Unknown]

NARRATIVE: CASE EVENT DATE: 2014
